FAERS Safety Report 22171766 (Version 1)
Quarter: 2023Q2

REPORT INFORMATION
  Report Type: Spontaneous
  Country: US (occurrence: US)
  Receive Date: 20230404
  Receipt Date: 20230404
  Transmission Date: 20230722
  Serious: No
  Sender: FDA-Public Use
  Company Number: US-GALDERMA-US2023003123

PATIENT

DRUGS (7)
  1. PROACTIV MD ADAPALENE ACNE TREATMENT [Suspect]
     Active Substance: ADAPALENE
     Indication: Sensitive skin
     Dosage: 1 DOSAGE FORM
     Route: 061
  2. Proactiv MD Ultra Gentle Cleanser [Concomitant]
     Indication: Sensitive skin
     Dosage: 1 DOSAGE FORM
     Route: 061
  3. Proactiv MD Ultra Hydrating Moisturizer [Concomitant]
     Indication: Sensitive skin
     Dosage: 1 DOSAGE FORM
     Route: 061
  4. PROACTIV ACNE BODY WASH [Concomitant]
     Active Substance: SALICYLIC ACID
     Indication: Sensitive skin
     Dosage: 1 DOSAGE FORM
     Route: 061
  5. PROACTIV BLACKHEAD DISSOLVING [Concomitant]
     Active Substance: SALICYLIC ACID
     Indication: Sensitive skin
     Dosage: 1 DOSAGE FORM
     Route: 061
  6. Proactiv Post Acne Dark Mark Relief [Concomitant]
     Indication: Sensitive skin
     Dosage: 1 DOSAGE FORM
     Route: 061
  7. Proactiv Post Acne Scar Gel [Concomitant]
     Indication: Sensitive skin
     Dosage: 1 DOSAGE FORM
     Route: 061

REACTIONS (2)
  - Skin irritation [Unknown]
  - Erythema [Unknown]
